FAERS Safety Report 6354789-5 (Version None)
Quarter: 2009Q3

REPORT INFORMATION
  Report Type: 
  Country: None (occurrence: None)
  Receive Date: 20090909
  Receipt Date: 20090831
  Transmission Date: 20100115
  Serious: Yes (Hospitalization)
  Sender: FDA-Public Use
  Company Number: CIO09015481

PATIENT
  Age: 83 Year
  Sex: Female

DRUGS (1)
  1. VICKS 44 CUSTOM CARE CHESTY COUGH, BERRY BURST FLAVOR (CONTINUED) [Suspect]
     Indication: COUGH
     Dosage: 30 ML, 1 ONLY FOR 1 DAY, ORAL
     Route: 048
     Dates: start: 20090814, end: 20090814

REACTIONS (6)
  - DIZZINESS [None]
  - DRUG ADMINISTRATION ERROR [None]
  - INCORRECT DOSE ADMINISTERED [None]
  - INSOMNIA [None]
  - TREMOR [None]
  - VOMITING [None]
